FAERS Safety Report 10238020 (Version 1)
Quarter: 2014Q2

REPORT INFORMATION
  Report Type: Spontaneous
  Country: US (occurrence: US)
  Receive Date: 20140616
  Receipt Date: 20140616
  Transmission Date: 20141212
  Serious: No
  Sender: FDA-Public Use
  Company Number: US-BIOGENIDEC-2014BI053395

PATIENT
  Age: 69 Year
  Sex: Male

DRUGS (4)
  1. TECFIDERA [Suspect]
     Indication: MULTIPLE SCLEROSIS
     Route: 048
     Dates: start: 201303
  2. TIZANIDINE HCL [Concomitant]
  3. TAMSULOSIN HCL [Concomitant]
  4. LISINOPRIL [Concomitant]

REACTIONS (2)
  - Blood pressure increased [Unknown]
  - Flushing [Unknown]
